FAERS Safety Report 8214807 (Version 2)
Quarter: 2015Q1

REPORT INFORMATION
  Report Type: Spontaneous
  Country: US (occurrence: US)
  Receive Date: 20111030
  Receipt Date: 20150109
  Transmission Date: 20150721
  Serious: No
  Sender: FDA-Public Use
  Company Number: US-AMGEN-USASP2011025486

PATIENT
  Age: 58 Year
  Sex: Female

DRUGS (2)
  1. METHOTREXATE [Concomitant]
     Active Substance: METHOTREXATE
     Dosage: 20 MG, QWK (2.5 MG 8 TABLETS)
     Route: 048
     Dates: start: 201101
  2. ENBREL [Suspect]
     Active Substance: ETANERCEPT
     Indication: RHEUMATOID ARTHRITIS
     Dosage: 50 MG, QWK
     Route: 058
     Dates: start: 20110427

REACTIONS (8)
  - Upper-airway cough syndrome [Not Recovered/Not Resolved]
  - Rales [Not Recovered/Not Resolved]
  - Malaise [Not Recovered/Not Resolved]
  - Pain [Not Recovered/Not Resolved]
  - Cough [Not Recovered/Not Resolved]
  - Sneezing [Not Recovered/Not Resolved]
  - No therapeutic response [Not Recovered/Not Resolved]
  - Respiratory tract congestion [Unknown]

NARRATIVE: CASE EVENT DATE: 201104
